FAERS Safety Report 4891768-9 (Version None)
Quarter: 2005Q4

REPORT INFORMATION
  Report Type: 
  Country: None (occurrence: None)
  Receive Date: 20051220
  Receipt Date: 20050920
  Transmission Date: 20060501
  Serious: Yes (Other)
  Sender: FDA-Public Use
  Company Number: 418615

PATIENT
  Age: 67 Year
  Sex: Female
  Weight: 96.2 kg

DRUGS (3)
  1. BONIVA [Suspect]
     Dosage: 150 MG 1 PER MONTH ORAL
     Route: 048
     Dates: start: 20050830
  2. NORFLEX (ORPHENADRINE) [Concomitant]
  3. NITROGLYCERIN PATCH (NITROGLYCERIN PATCH) [Concomitant]

REACTIONS (6)
  - CONFUSIONAL STATE [None]
  - COUGH [None]
  - FATIGUE [None]
  - HEADACHE [None]
  - NAUSEA [None]
  - PRURITUS [None]
